FAERS Safety Report 15294960 (Version 1)
Quarter: 2018Q3

REPORT INFORMATION
  Report Type: Spontaneous
  Country: US (occurrence: US)
  Receive Date: 20180807
  Receipt Date: 20180807
  Transmission Date: 20181010
  Serious: Yes (Disabling, Other)
  Sender: FDA-Public Use
  Company Number: None

PATIENT
  Age: 53 Year
  Sex: Male
  Weight: 99.79 kg

DRUGS (2)
  1. ATORVASTATIN CALCIUM TABLETS [Suspect]
     Active Substance: ATORVASTATIN CALCIUM
     Indication: BLOOD CHOLESTEROL INCREASED
     Dosage: ?          QUANTITY:1 DF DOSAGE FORM;?
     Route: 048
     Dates: start: 20180703, end: 20180706
  2. BABY ASPRIN [Concomitant]
     Active Substance: ASPIRIN

REACTIONS (3)
  - Visual impairment [None]
  - Confusional state [None]
  - Hypoaesthesia [None]

NARRATIVE: CASE EVENT DATE: 20180705
